FAERS Safety Report 4657953-6 (Version None)
Quarter: 2005Q2

REPORT INFORMATION
  Report Type: 
  Country: None (occurrence: None)
  Receive Date: 20050510
  Receipt Date: 20050503
  Transmission Date: 20051028
  Serious: Yes (Life-Threatening, Other)
  Sender: FDA-Public Use
  Company Number: 2005GB00861

PATIENT
  Age: 21 Year
  Sex: Female

DRUGS (8)
  1. MERREM [Suspect]
     Indication: BRONCHIECTASIS
     Route: 042
     Dates: start: 20050316, end: 20050405
  2. CIMETIDINE [Concomitant]
     Indication: HYPERCHLORHYDRIA
     Route: 048
  3. SOLVAY CREON 10000 [Concomitant]
     Indication: PANCREATIC INSUFFICIENCY
     Route: 048
  4. SALBUTAMOL [Concomitant]
     Indication: ASTHMA
     Route: 055
  5. SERETIDE [Concomitant]
     Indication: ASTHMA
     Route: 055
     Dates: start: 20040101
  6. VITAMIN A [Concomitant]
     Indication: HYPOVITAMINOSIS
     Route: 048
  7. VITAMIN D [Concomitant]
     Indication: HYPOVITAMINOSIS
     Route: 048
  8. VITAMIN E [Concomitant]
     Indication: HYPOVITAMINOSIS
     Route: 048

REACTIONS (2)
  - FEBRILE NEUTROPENIA [None]
  - SEPTIC SHOCK [None]
